FAERS Safety Report 26161533 (Version 2)
Quarter: 2025Q4

REPORT INFORMATION
  Report Type: Spontaneous
  Country: EU (occurrence: EU)
  Receive Date: 20251216
  Receipt Date: 20251224
  Transmission Date: 20260117
  Serious: Yes (Other)
  Sender: NOVARTIS
  Company Number: EU-002147023-NVSC2025DE190968

PATIENT
  Age: 83 Year
  Sex: Female

DRUGS (3)
  1. LUCENTIS [Suspect]
     Active Substance: RANIBIZUMAB
     Indication: Neovascular age-related macular degeneration
     Dosage: UNK
     Route: 031
     Dates: end: 2021
  2. LUCENTIS [Suspect]
     Active Substance: RANIBIZUMAB
     Dosage: UNK
     Route: 031
     Dates: start: 2025, end: 20251007
  3. BEOVU [Suspect]
     Active Substance: BROLUCIZUMAB-DBLL
     Indication: Neovascular age-related macular degeneration
     Dosage: UNK
     Route: 065

REACTIONS (13)
  - Vitreous detachment [Not Recovered/Not Resolved]
  - Ischaemic stroke [Recovered/Resolved]
  - Polyneuropathy [Not Recovered/Not Resolved]
  - Dysarthria [Recovered/Resolved]
  - Drug ineffective [Recovered/Resolved]
  - Headache [Recovered/Resolved]
  - Asthma [Not Recovered/Not Resolved]
  - Bronchitis [Recovered/Resolved]
  - Bronchitis chronic [Not Recovered/Not Resolved]
  - Pruritus [Not Recovered/Not Resolved]
  - Photopsia [Not Recovered/Not Resolved]
  - Hypoaesthesia [Not Recovered/Not Resolved]
  - Muscular weakness [Not Recovered/Not Resolved]

NARRATIVE: CASE EVENT DATE: 20200101
